FAERS Safety Report 22064626 (Version 1)
Quarter: 2023Q1

REPORT INFORMATION
  Report Type: Spontaneous
  Country: US (occurrence: None)
  Receive Date: 20230305
  Receipt Date: 20230305
  Transmission Date: 20230417
  Serious: Yes (Disabling)
  Sender: FDA-Public Use
  Company Number: None

PATIENT
  Age: 28 Year
  Sex: Female
  Weight: 83.25 kg

DRUGS (1)
  1. LETROZOLE [Suspect]
     Active Substance: LETROZOLE
     Indication: Infertility

REACTIONS (4)
  - Tinnitus [None]
  - VIIIth nerve injury [None]
  - Deafness permanent [None]
  - Off label use [None]

NARRATIVE: CASE EVENT DATE: 20211011
